FAERS Safety Report 21926980 (Version 1)
Quarter: 2023Q1

REPORT INFORMATION
  Report Type: Spontaneous
  Country: US (occurrence: None)
  Receive Date: 20230128
  Receipt Date: 20230128
  Transmission Date: 20230418
  Serious: No
  Sender: FDA-Public Use
  Company Number: None

PATIENT
  Age: 72 Year
  Sex: Male
  Weight: 83.25 kg

DRUGS (5)
  1. PRIMIDONE [Suspect]
     Active Substance: PRIMIDONE
     Indication: Seizure
     Dosage: OTHER QUANTITY : 1 TABLET(S);?
     Route: 048
  2. DILANTIN [Concomitant]
     Active Substance: PHENYTOIN
  3. VITAMINS [Concomitant]
     Active Substance: VITAMINS
  4. AMINO ACIDS [Concomitant]
     Active Substance: AMINO ACIDS
  5. PHENOBARBITAL [Suspect]
     Active Substance: PHENOBARBITAL

REACTIONS (1)
  - Delirium tremens [None]

NARRATIVE: CASE EVENT DATE: 20230103
